FAERS Safety Report 17760379 (Version 3)
Quarter: 2020Q2

REPORT INFORMATION
  Report Type: Spontaneous
  Country: US (occurrence: US)
  Receive Date: 20200508
  Receipt Date: 20200528
  Transmission Date: 20200714
  Serious: No
  Sender: FDA-Public Use
  Company Number: US-VERTEX PHARMACEUTICALS-2020-010120

PATIENT
  Age: 13 Year
  Sex: Female

DRUGS (5)
  1. PROVENTIL [Concomitant]
     Active Substance: ALBUTEROL
  2. TRIKAFTA [Suspect]
     Active Substance: ELEXACAFTOR\IVACAFTOR\TEZACAFTOR
     Indication: CYSTIC FIBROSIS
     Dosage: 2 TABS100 MG ELEXACAFTOR/ 50 MG TEZACAFTOR/ 75 MG IVACAFTOR AM;1 TAB150MG IVACAFTOR PM
     Route: 048
     Dates: start: 20191230
  3. DEKAS PLUS [Concomitant]
  4. RANITIDINE. [Concomitant]
     Active Substance: RANITIDINE
  5. VITAMIN D3 [Concomitant]
     Active Substance: CHOLECALCIFEROL

REACTIONS (2)
  - Insomnia [Not Recovered/Not Resolved]
  - Aggression [Not Recovered/Not Resolved]

NARRATIVE: CASE EVENT DATE: 201912
